FAERS Safety Report 6308203-6 (Version None)
Quarter: 2009Q3

REPORT INFORMATION
  Report Type: 
  Country: None (occurrence: None)
  Receive Date: 20090807
  Receipt Date: 20090723
  Transmission Date: 20100115
  Serious: Yes (Other)
  Sender: FDA-Public Use
  Company Number: 2009AP003137

PATIENT
  Age: 61 Year
  Sex: Male

DRUGS (3)
  1. ZOLPIDEM TARTRATE [Suspect]
     Indication: SLEEP DISORDER
     Dosage: 10 MG; QD; PO
     Route: 048
  2. VALSARTAN [Concomitant]
  3. HYDROCHLOROTHIAZIDE [Concomitant]

REACTIONS (4)
  - ABNORMAL BEHAVIOUR [None]
  - ACCIDENT [None]
  - AMNESIA [None]
  - SOMNAMBULISM [None]
